FAERS Safety Report 21528875 (Version 1)
Quarter: 2022Q4

REPORT INFORMATION
  Report Type: Spontaneous
  Country: GB (occurrence: GB)
  Receive Date: 20221031
  Receipt Date: 20221031
  Transmission Date: 20230113
  Serious: Yes (Other)
  Sender: FDA-Public Use
  Company Number: None

PATIENT
  Age: 55 Year
  Sex: Female
  Weight: 75 kg

DRUGS (23)
  1. BUPRENORPHINE [Suspect]
     Active Substance: BUPRENORPHINE
     Indication: Product used for unknown indication
     Dosage: 1 DOSAGE FORM (5 MICROGRAMS/HOUR)
     Route: 065
     Dates: start: 20220916
  2. ACYCLOVIR [Concomitant]
     Active Substance: ACYCLOVIR
     Dosage: 1 DOSAGE FORM, QD
     Route: 065
     Dates: start: 20220412
  3. AMITRIPTYLINE HYDROCHLORIDE [Concomitant]
     Active Substance: AMITRIPTYLINE HYDROCHLORIDE
     Dosage: UNK UNK, PM (1 OR 2 TO BE TAKEN AT NIGHT)
     Route: 065
     Dates: start: 20221007
  4. BETAHISTINE [Concomitant]
     Active Substance: BETAHISTINE
     Dosage: UNK (REVIEW)
     Route: 065
     Dates: start: 20220901, end: 20220915
  5. BISOPROLOL [Concomitant]
     Active Substance: BISOPROLOL
     Dosage: 1 DOSAGE FORM, QD
     Route: 065
     Dates: start: 20220412
  6. BUPRENORPHINE [Concomitant]
     Active Substance: BUPRENORPHINE
     Dosage: 1 DOSAGE FORM, QD
     Route: 065
     Dates: start: 20220913, end: 20221011
  7. CHLORPHENIRAMINE MALEATE [Concomitant]
     Active Substance: CHLORPHENIRAMINE MALEATE
     Dosage: 1 DOSAGE FORM (EVERY 4-6 HRS)
     Route: 065
     Dates: start: 20220914, end: 20220915
  8. COCODAMOL [Concomitant]
     Active Substance: ACETAMINOPHEN\CODEINE PHOSPHATE
     Dosage: UNK UNK, PRN (ONE OR TWO WHEN RE)
     Route: 065
     Dates: start: 20220412
  9. FAMOTIDINE [Concomitant]
     Active Substance: FAMOTIDINE
     Dosage: UNK (USE AS DIRECTED )
     Route: 065
     Dates: start: 20220913
  10. IBANDRONIC ACID [Concomitant]
     Active Substance: IBANDRONIC ACID
     Dosage: 1 DOSAGE FORM (DIRECTED)
     Route: 065
     Dates: start: 20220412
  11. LISINOPRIL [Concomitant]
     Active Substance: LISINOPRIL
     Dosage: 1 DOSAGE FORM, QD
     Route: 065
     Dates: start: 20220412
  12. MAGNESIUM [Concomitant]
     Active Substance: MAGNESIUM
     Dosage: 2 DOSAGE FORM, QD
     Route: 065
     Dates: start: 20220608
  13. METFORMIN [Concomitant]
     Active Substance: METFORMIN HYDROCHLORIDE
     Dosage: 3 DOSAGE FORM, QD
     Route: 065
     Dates: start: 20220412
  14. MONTELUKAST [Concomitant]
     Active Substance: MONTELUKAST SODIUM
     Dosage: 1 DOSAGE FORM, PM (AT NIGHT )
     Route: 065
     Dates: start: 20220412, end: 20220808
  15. MORPHINE SULFATE [Concomitant]
     Active Substance: MORPHINE SULFATE
     Dosage: UNK (RECOMMENDED DOSE: 5-10MG (2.5-5ML) EVER)
     Route: 065
     Dates: start: 20220825, end: 20220826
  16. OMEPRAZOLE [Concomitant]
     Active Substance: OMEPRAZOLE
     Dosage: 1 DOSAGE FORM, QD
     Route: 065
     Dates: start: 20220412, end: 20220718
  17. PANTOPRAZOLE [Concomitant]
     Active Substance: PANTOPRAZOLE
     Dosage: 1 DOSAGE FORM, QD
     Route: 065
     Dates: start: 20220718
  18. PREDNISOLONE [Concomitant]
     Active Substance: PREDNISOLONE
     Dosage: 1 DOSAGE FORM, QD
     Route: 065
     Dates: start: 20220914, end: 20220917
  19. SERETIDE [Concomitant]
     Active Substance: FLUTICASONE PROPIONATE\SALMETEROL XINAFOATE
     Dosage: 1 DOSAGE FORM, QD
     Route: 055
     Dates: start: 20220412
  20. SIMVASTATIN [Concomitant]
     Active Substance: SIMVASTATIN
     Dosage: 1 DOSAGE FORM, PM (AT NIGHT)
     Route: 065
     Dates: start: 20220412
  21. SPIRIVA [Concomitant]
     Active Substance: TIOTROPIUM BROMIDE MONOHYDRATE
     Dosage: 1 DOSAGE FORM, QD
     Route: 055
     Dates: start: 20220412
  22. THEOPHYLLINE ANHYDROUS [Concomitant]
     Active Substance: THEOPHYLLINE ANHYDROUS
     Dosage: 1 DOSAGE FORM, BID
     Route: 065
     Dates: start: 20220629
  23. VENTOLIN [Concomitant]
     Active Substance: ALBUTEROL SULFATE
     Dosage: 2 DOSAGE FORM, PRN (AS NECESSARY)
     Route: 055
     Dates: start: 20220412

REACTIONS (1)
  - Angioedema [Unknown]

NARRATIVE: CASE EVENT DATE: 20220916
